FAERS Safety Report 20689301 (Version 1)
Quarter: 2022Q2

REPORT INFORMATION
  Report Type: Report from Study
  Country: US (occurrence: US)
  Receive Date: 20220408
  Receipt Date: 20220408
  Transmission Date: 20220720
  Serious: Yes (Other)
  Sender: FDA-Public Use
  Company Number: US-NOVARTISPH-NVSC2022US078487

PATIENT
  Age: 75 Year
  Sex: Female

DRUGS (2)
  1. AFINITOR [Suspect]
     Active Substance: EVEROLIMUS
     Indication: Breast cancer female
     Dosage: 5 MG, QD
     Route: 048
     Dates: start: 20201222
  2. AFINITOR [Suspect]
     Active Substance: EVEROLIMUS
     Indication: Bone neoplasm

REACTIONS (1)
  - Mouth haemorrhage [Recovering/Resolving]
